FAERS Safety Report 19767532 (Version 1)
Quarter: 2021Q3

REPORT INFORMATION
  Report Type: Spontaneous
  Country: US (occurrence: US)
  Receive Date: 20210830
  Receipt Date: 20210830
  Transmission Date: 20211014
  Serious: Yes (Other)
  Sender: FDA-Public Use
  Company Number: None

PATIENT
  Age: 69 Year
  Sex: Male
  Weight: 150.07 kg

DRUGS (20)
  1. LISINOPRIL. [Concomitant]
     Active Substance: LISINOPRIL
  2. MAGNESIUM [Concomitant]
     Active Substance: MAGNESIUM
  3. ELDERBERRY [Concomitant]
     Active Substance: HERBALS
  4. CAPECITABINE. [Suspect]
     Active Substance: CAPECITABINE
     Indication: COLON CANCER
     Route: 048
     Dates: start: 20210811
  5. CLONIDINE. [Concomitant]
     Active Substance: CLONIDINE
  6. PROSTAGENIX [Concomitant]
  7. COREG [Concomitant]
     Active Substance: CARVEDILOL
  8. NORVASC [Concomitant]
     Active Substance: AMLODIPINE BESYLATE
  9. IBUPROFEN. [Concomitant]
     Active Substance: IBUPROFEN
  10. CHLORTHALIDONE. [Concomitant]
     Active Substance: CHLORTHALIDONE
  11. METHOCARBAMOL. [Concomitant]
     Active Substance: METHOCARBAMOL
  12. VITAMIN CER [Concomitant]
  13. AMLODIPINE [Concomitant]
     Active Substance: AMLODIPINE BESYLATE
  14. DEPO?MEDROL [Concomitant]
     Active Substance: METHYLPREDNISOLONE ACETATE
  15. ZYRTEC [Concomitant]
     Active Substance: CETIRIZINE HYDROCHLORIDE
  16. OXYCODONE [Concomitant]
     Active Substance: OXYCODONE
  17. TYLENOL EXTRA STRENGTH [Concomitant]
     Active Substance: ACETAMINOPHEN
  18. DIAZEPAM. [Concomitant]
     Active Substance: DIAZEPAM
  19. VITAMI ND3 [Concomitant]
  20. LIDOCAINE. [Concomitant]
     Active Substance: LIDOCAINE

REACTIONS (2)
  - Burning sensation [None]
  - Abdominal discomfort [None]

NARRATIVE: CASE EVENT DATE: 20210830
